FAERS Safety Report 6491541-4 (Version None)
Quarter: 2009Q4

REPORT INFORMATION
  Report Type: 
  Country: None (occurrence: None)
  Receive Date: 20091211
  Receipt Date: 20091203
  Transmission Date: 20100525
  Serious: Yes (Hospitalization, Other)
  Sender: FDA-Public Use
  Company Number: CH-ABBOTT-09P-151-0612299-00

PATIENT
  Age: 19 Year
  Sex: Male

DRUGS (2)
  1. VALPROIC ACID [Suspect]
     Indication: EPILEPSY
  2. LORAZEPAM [Concomitant]
     Indication: AGITATION
     Route: 042

REACTIONS (3)
  - DRUG TOXICITY [None]
  - ILL-DEFINED DISORDER [None]
  - OVERDOSE [None]
